FAERS Safety Report 6103310-5 (Version None)
Quarter: 2009Q1

REPORT INFORMATION
  Report Type: 
  Country: None (occurrence: None)
  Receive Date: 20090305
  Receipt Date: 20090223
  Transmission Date: 20090719
  Serious: Yes (Other)
  Sender: FDA-Public Use
  Company Number: US-KINGPHARMUSA00001-K200900192

PATIENT
  Sex: Female

DRUGS (3)
  1. SKELAXIN [Suspect]
     Indication: INJURY
     Dosage: UNK, TID
     Route: 048
     Dates: start: 20090216, end: 20090217
  2. NAPROXEN [Concomitant]
     Dosage: UNK
  3. RITALIN [Concomitant]
     Dosage: UNK

REACTIONS (7)
  - ABDOMINAL PAIN UPPER [None]
  - COLD SWEAT [None]
  - DRUG INEFFECTIVE [None]
  - HEAD INJURY [None]
  - NAUSEA [None]
  - NERVOUSNESS [None]
  - SYNCOPE [None]
